FAERS Safety Report 7350797-6 (Version None)
Quarter: 2011Q1

REPORT INFORMATION
  Report Type: 
  Country: None (occurrence: None)
  Receive Date: 20110314
  Receipt Date: 20110308
  Transmission Date: 20110831
  Serious: Yes (Other)
  Sender: FDA-Public Use
  Company Number: US-PFIZER INC-2011051390

PATIENT
  Sex: Male
  Weight: 90.7 kg

DRUGS (8)
  1. SUTENT [Suspect]
     Indication: RENAL CELL CARCINOMA
     Dosage: 50 MG, 1X/DAY
     Route: 048
     Dates: start: 20090601, end: 20110301
  2. TOPROL-XL [Concomitant]
     Indication: ATRIAL FIBRILLATION
     Dosage: 50 MG, 1X/DAY
     Route: 048
  3. TOPROL-XL [Concomitant]
     Indication: WEIGHT CONTROL
  4. MOTRIN [Concomitant]
     Dosage: UNK
     Route: 048
  5. LISINOPRIL AND HYDROCHLOROTHIAZIDE [Concomitant]
     Indication: HYPERTENSION
     Dosage: 20/25MG
     Route: 048
  6. WARFARIN SODIUM [Concomitant]
     Indication: ATRIAL FIBRILLATION
     Dosage: 7.5 MG, 1X/DAY
     Route: 048
  7. ZOVIRAX [Concomitant]
     Dosage: UNK
     Route: 048
  8. CIALIS [Concomitant]
     Dosage: 20 MG, AS NEEDED
     Route: 048

REACTIONS (1)
  - PANCREATITIS [None]
